FAERS Safety Report 5001705-4 (Version None)
Quarter: 2006Q2

REPORT INFORMATION
  Report Type: 
  Country: None (occurrence: None)
  Receive Date: 20060515
  Receipt Date: 20060324
  Transmission Date: 20061013
  Serious: Yes (Death, Hospitalization, Other)
  Sender: FDA-Public Use
  Company Number: PHNU2006DE01448

PATIENT
  Age: 75 Year
  Sex: Male
  Weight: 75 kg

DRUGS (7)
  1. CERTICAN [Suspect]
     Indication: RENAL TRANSPLANT
     Dosage: 1.5 MG DAILY
     Route: 048
     Dates: start: 20050129, end: 20050310
  2. CERTICAN [Suspect]
     Dosage: 1.0 MG DAILY
     Route: 048
     Dates: start: 20050311, end: 20050517
  3. CERTICAN [Suspect]
     Dosage: 0.75 MG DAILY
     Route: 048
     Dates: start: 20050518, end: 20050524
  4. CERTICAN [Suspect]
     Dosage: 0.5 MG DAILY
     Route: 048
     Dates: start: 20050525, end: 20050830
  5. CERTICAN [Suspect]
     Dosage: 0.5 MG DAILY
     Route: 048
     Dates: start: 20050906, end: 20051011
  6. CYCLOSPORINE [Suspect]
     Indication: RENAL TRANSPLANT
     Dosage: 150 MG, QD
     Route: 048
     Dates: start: 19991214
  7. METHYLPREDNISOLONE [Suspect]
     Indication: RENAL TRANSPLANT
     Dosage: 4 MG, QD
     Route: 048
     Dates: start: 19991214

REACTIONS (7)
  - ANAL CANCER METASTATIC [None]
  - INFECTION [None]
  - METASTASES TO BONE [None]
  - PRECANCEROUS SKIN LESION [None]
  - RENAL FAILURE [None]
  - SEPSIS [None]
  - SHOCK [None]
